APPROVED DRUG PRODUCT: AVANDIA
Active Ingredient: ROSIGLITAZONE MALEATE
Strength: EQ 4MG BASE **Federal Register determination that product was not discontinued or withdrawn for safety or effectiveness reasons**
Dosage Form/Route: TABLET;ORAL
Application: N021071 | Product #003
Applicant: WOODWARD PHARMA SERVICES LLC
Approved: May 25, 1999 | RLD: Yes | RS: No | Type: DISCN